FAERS Safety Report 5039264-2 (Version None)
Quarter: 2006Q2

REPORT INFORMATION
  Report Type: 
  Country: None (occurrence: None)
  Receive Date: 20060623
  Receipt Date: 20060608
  Transmission Date: 20061013
  Serious: Yes (Hospitalization, Other)
  Sender: FDA-Public Use
  Company Number: US200603005785

PATIENT
  Age: 71 Year
  Sex: Female
  Weight: 45.4 kg

DRUGS (2)
  1. EVISTA [Suspect]
     Indication: OSTEOPOROSIS
     Dosage: 60 MG, DAILY (1/D, ORAL
     Route: 048
     Dates: start: 19960101, end: 20030415
  2. FOSAMAX [Concomitant]

REACTIONS (1)
  - BREAST CANCER IN SITU [None]
